FAERS Safety Report 5965733-4 (Version None)
Quarter: 2008Q4

REPORT INFORMATION
  Report Type: 
  Country: None (occurrence: None)
  Receive Date: 20081125
  Receipt Date: 20081120
  Transmission Date: 20090506
  Serious: Yes (Hospitalization)
  Sender: FDA-Public Use
  Company Number: A0758198A

PATIENT
  Age: 3 Year
  Sex: Male

DRUGS (1)
  1. AMOXIL [Suspect]
     Indication: PHARYNGOTONSILLITIS
     Dosage: 90MGKD PER DAY
     Route: 048
     Dates: start: 20081006, end: 20081015

REACTIONS (4)
  - ADVERSE DRUG REACTION [None]
  - ARTHRITIS REACTIVE [None]
  - DERMATITIS EXFOLIATIVE [None]
  - MYALGIA [None]
